FAERS Safety Report 7208350-0 (Version None)
Quarter: 2010Q4

REPORT INFORMATION
  Report Type: 
  Country: None (occurrence: None)
  Receive Date: 20101230
  Receipt Date: 20101230
  Transmission Date: 20110411
  Serious: Yes (Other)
  Sender: FDA-Public Use
  Company Number: None

PATIENT
  Sex: Female
  Weight: 74.8435 kg

DRUGS (1)
  1. PROMETRIUM [Suspect]
     Dosage: 200MG 2X A DAY
     Dates: start: 20101201

REACTIONS (1)
  - DYSPNOEA [None]
